FAERS Safety Report 11528404 (Version 1)
Quarter: 2015Q3

REPORT INFORMATION
  Report Type: Spontaneous
  Country: US (occurrence: US)
  Receive Date: 20150921
  Receipt Date: 20150921
  Transmission Date: 20151125
  Serious: Yes (Hospitalization)
  Sender: FDA-Public Use
  Company Number: US-TEVA-544468USA

PATIENT
  Sex: Male

DRUGS (1)
  1. CLONAZEPAM. [Suspect]
     Active Substance: CLONAZEPAM
     Indication: NIGHTMARE
     Route: 048
     Dates: start: 20150224, end: 20150226

REACTIONS (2)
  - Disorientation [Not Recovered/Not Resolved]
  - Drug effect increased [Unknown]

NARRATIVE: CASE EVENT DATE: 20150225
